FAERS Safety Report 7134109-9 (Version None)
Quarter: 2010Q4

REPORT INFORMATION
  Report Type: 
  Country: None (occurrence: None)
  Receive Date: 20101117
  Receipt Date: 20101101
  Transmission Date: 20110411
  Serious: Yes (Hospitalization, Other)
  Sender: FDA-Public Use
  Company Number: 2010004819

PATIENT
  Age: 82 Year
  Sex: Female

DRUGS (4)
  1. ERLOTINIB HYDROCHLORIDE [Suspect]
     Indication: LUNG ADENOCARCINOMA METASTATIC
     Dosage: SEE IMAGE,  ORAL
     Route: 048
     Dates: start: 20070701, end: 20070701
  2. ERLOTINIB HYDROCHLORIDE [Suspect]
     Indication: LUNG ADENOCARCINOMA METASTATIC
     Dosage: SEE IMAGE,  ORAL
     Route: 048
     Dates: start: 20070801, end: 20070801
  3. ERLOTINIB HYDROCHLORIDE [Suspect]
     Indication: LUNG ADENOCARCINOMA METASTATIC
     Dosage: SEE IMAGE,  ORAL
     Route: 048
     Dates: start: 20080101, end: 20080101
  4. ERLOTINIB HYDROCHLORIDE [Suspect]
     Indication: LUNG ADENOCARCINOMA METASTATIC
     Dosage: SEE IMAGE,  ORAL
     Route: 048
     Dates: start: 20080101

REACTIONS (6)
  - DIARRHOEA [None]
  - LETHARGY [None]
  - OEDEMA PERIPHERAL [None]
  - PROCTALGIA [None]
  - SKIN FISSURES [None]
  - SKIN ULCER [None]
